FAERS Safety Report 6715396-5 (Version None)
Quarter: 2010Q2

REPORT INFORMATION
  Report Type: 
  Country: None (occurrence: None)
  Receive Date: 20100507
  Receipt Date: 20100429
  Transmission Date: 20101027
  Serious: Yes (Death)
  Sender: FDA-Public Use
  Company Number: US-JNJFOC-20100201180

PATIENT
  Age: 92 Year
  Sex: Female
  Weight: 47.63 kg

DRUGS (13)
  1. ST. JOSEPH ENTERIC COATED [Suspect]
     Indication: DRUG USE FOR UNKNOWN INDICATION
     Dosage: USED FOR ONE WEEK
  2. FISH OIL [Concomitant]
     Indication: ARTHRITIS
  3. LIPITOR [Concomitant]
     Indication: BLOOD CHOLESTEROL INCREASED
  4. ATENOLOL [Concomitant]
     Indication: HYPERTENSION
  5. PREDNISONE [Concomitant]
  6. FUROSEMIDE [Concomitant]
     Indication: FLUID RETENTION
  7. ISOSORBIDE MONONITRATE [Concomitant]
     Indication: CARDIAC DISORDER
  8. OMEPRAZOLE [Concomitant]
  9. WELLBUTRIN SR [Concomitant]
     Indication: DEPRESSION
  10. NIFEDIPINE [Concomitant]
     Indication: HYPERTENSION
  11. DOCUSATE SODIUM [Concomitant]
     Indication: ABNORMAL FAECES
  12. MULTI-VITAMINS [Concomitant]
  13. COUMADIN [Concomitant]
     Indication: ANTICOAGULANT THERAPY

REACTIONS (6)
  - DEATH [None]
  - DIARRHOEA [None]
  - DIZZINESS [None]
  - FAECES HARD [None]
  - NAUSEA [None]
  - PRODUCT QUALITY ISSUE [None]
